FAERS Safety Report 9664326 (Version 2)
Quarter: 2014Q1

REPORT INFORMATION
  Report Type: Report from Study
  Country: JP (occurrence: JP)
  Receive Date: 20131101
  Receipt Date: 20140110
  Transmission Date: 20141002
  Serious: Yes (Hospitalization, Disabling)
  Sender: FDA-Public Use
  Company Number: JP-SA-2013SA109765

PATIENT
  Age: 63 Year
  Sex: Female
  Weight: 56 kg

DRUGS (12)
  1. THYMOGLOBULINE [Suspect]
     Indication: ACUTE GRAFT VERSUS HOST DISEASE
     Route: 042
     Dates: start: 20130116, end: 20130116
  2. THYMOGLOBULINE [Suspect]
     Indication: ACUTE GRAFT VERSUS HOST DISEASE
     Route: 042
     Dates: start: 20130202, end: 20130202
  3. TACROLIMUS [Concomitant]
     Indication: PROPHYLAXIS AGAINST GRAFT VERSUS HOST DISEASE
  4. METHYLPREDNISOLONE [Concomitant]
     Indication: ACUTE GRAFT VERSUS HOST DISEASE
  5. METHYLPREDNISOLONE [Concomitant]
     Indication: PROPHYLAXIS AGAINST GRAFT VERSUS HOST DISEASE
  6. VFEND [Concomitant]
     Indication: INFECTION PROPHYLAXIS
  7. ZOVIRAX [Concomitant]
     Indication: INFECTION PROPHYLAXIS
  8. CRAVIT [Concomitant]
     Indication: INFECTION PROPHYLAXIS
  9. FOSCAVIR [Concomitant]
     Indication: INFECTION PROPHYLAXIS
     Dates: end: 20130320
  10. CEFTAZIDIME [Concomitant]
     Indication: INFECTION PROPHYLAXIS
     Route: 042
     Dates: end: 20130310
  11. TEICOPLANIN [Concomitant]
     Indication: INFECTION PROPHYLAXIS
     Route: 042
     Dates: start: 20130116
  12. FINIBAX [Concomitant]
     Indication: INFECTION PROPHYLAXIS
     Dates: start: 20130119

REACTIONS (6)
  - Activities of daily living impaired [Not Recovered/Not Resolved]
  - Protein-losing gastroenteropathy [Recovered/Resolved]
  - Hypoalbuminaemia [Recovered/Resolved]
  - Uterine prolapse [Not Recovered/Not Resolved]
  - Ileus paralytic [Not Recovered/Not Resolved]
  - Cytomegalovirus enterocolitis [Recovered/Resolved]
